FAERS Safety Report 20726966 (Version 1)
Quarter: 2022Q2

REPORT INFORMATION
  Report Type: Spontaneous
  Country: US (occurrence: US)
  Receive Date: 20220419
  Receipt Date: 20220419
  Transmission Date: 20220721
  Serious: Yes (Hospitalization)
  Sender: FDA-Public Use
  Company Number: US-MYOVANT SCIENCES IRELAND LIMITED-2022MYSCI0400207

PATIENT
  Age: 76 Year
  Sex: Male
  Weight: 77.098 kg

DRUGS (6)
  1. ORGOVYX [Suspect]
     Active Substance: RELUGOLIX
     Indication: Prostate cancer
     Dosage: 360 MILLIGRAM, ONE TIME DOSE
     Route: 048
     Dates: start: 20220406, end: 20220406
  2. ORGOVYX [Suspect]
     Active Substance: RELUGOLIX
     Dosage: 120 MILLIGRAM, QD
     Route: 048
     Dates: start: 20220407
  3. BUSPAR [Concomitant]
     Active Substance: BUSPIRONE HYDROCHLORIDE
     Indication: Anxiety
     Dosage: 10 MILLIGRAM, TID
     Route: 048
  4. MIRTAZAPINE [Concomitant]
     Active Substance: MIRTAZAPINE
     Indication: Product used for unknown indication
     Dosage: 0.25 TAB, QD
     Route: 048
  5. TYLENOL                            /00020001/ [Concomitant]
     Indication: Pain
     Dosage: 500 MILLIGRAM, TID
     Route: 048
  6. MIRABEGRON [Concomitant]
     Active Substance: MIRABEGRON
     Indication: Sleep disorder
     Dosage: UNK
     Route: 065

REACTIONS (8)
  - Groin pain [Unknown]
  - Testicular pain [Unknown]
  - Pain in extremity [Unknown]
  - Positron emission tomogram abnormal [Unknown]
  - Dry mouth [Unknown]
  - Chapped lips [Unknown]
  - Decreased appetite [Unknown]
  - Arthralgia [Unknown]

NARRATIVE: CASE EVENT DATE: 20220407
